FAERS Safety Report 17197791 (Version 1)
Quarter: 2019Q4

REPORT INFORMATION
  Report Type: Spontaneous
  Country: US (occurrence: US)
  Receive Date: 20191224
  Receipt Date: 20191224
  Transmission Date: 20200122
  Serious: Yes (Other)
  Sender: FDA-Public Use
  Company Number: US-AMGEN-USASP2019211836

PATIENT
  Sex: Male

DRUGS (10)
  1. PROGESTERONE. [Concomitant]
     Active Substance: PROGESTERONE
     Indication: EXPOSURE DURING PREGNANCY
     Dosage: UNK
     Route: 064
  2. METHYL FOLATE [Concomitant]
     Active Substance: LEVOMEFOLATE CALCIUM
     Indication: EXPOSURE DURING PREGNANCY
     Dosage: UNK
     Route: 064
  3. NEUPOGEN [Suspect]
     Active Substance: FILGRASTIM
     Indication: EXPOSURE DURING PREGNANCY
     Dosage: UNK
     Route: 064
  4. MAKENA [Concomitant]
     Active Substance: HYDROXYPROGESTERONE CAPROATE
     Indication: EXPOSURE DURING PREGNANCY
     Dosage: UNK
     Route: 064
  5. SYNTHROID [Concomitant]
     Active Substance: LEVOTHYROXINE SODIUM
     Indication: EXPOSURE DURING PREGNANCY
     Dosage: UNK
     Route: 064
  6. ASPIRIN. [Concomitant]
     Active Substance: ASPIRIN
     Indication: EXPOSURE DURING PREGNANCY
     Dosage: UNK
     Route: 064
  7. PRENATAL VITAMINS [ASCORBIC ACID;BETACAROTENE;CALCIUM SULFATE;COLECALC [Concomitant]
     Indication: EXPOSURE DURING PREGNANCY
     Dosage: UNK
     Route: 064
  8. VITAMIN D [COLECALCIFEROL] [Concomitant]
     Active Substance: CHOLECALCIFEROL
     Indication: EXPOSURE DURING PREGNANCY
     Dosage: UNK
     Route: 064
  9. ESTRADIOL. [Concomitant]
     Active Substance: ESTRADIOL
     Indication: EXPOSURE DURING PREGNANCY
     Dosage: UNK
     Route: 064
  10. NIFEDIPINE. [Concomitant]
     Active Substance: NIFEDIPINE
     Indication: EXPOSURE DURING PREGNANCY
     Dosage: UNK
     Route: 064

REACTIONS (2)
  - Atrial septal defect [Recovered/Resolved]
  - Patent ductus arteriosus [Recovered/Resolved]

NARRATIVE: CASE EVENT DATE: 2018
